FAERS Safety Report 9008603 (Version 4)
Quarter: 2013Q1

REPORT INFORMATION
  Report Type: Spontaneous
  Country: JP (occurrence: JP)
  Receive Date: 20130111
  Receipt Date: 20130325
  Transmission Date: 20140127
  Serious: Yes (Hospitalization)
  Sender: FDA-Public Use
  Company Number: JP-VERTEX PHARMACEUTICALS INC.-2013-000471

PATIENT
  Age: 68 Year
  Sex: Male

DRUGS (9)
  1. TELAVIC [Suspect]
     Indication: CHRONIC HEPATITIS C
     Dosage: 1500 MG, QD
     Route: 048
     Dates: start: 20121105, end: 20130104
  2. PEGINTRON [Suspect]
     Indication: CHRONIC HEPATITIS C
     Dosage: 1.37 ?G/KG, QW
     Route: 058
     Dates: start: 20121105, end: 20121216
  3. PEGINTRON [Suspect]
     Dosage: 1.03 ?G/KG, QW
     Route: 058
     Dates: start: 20121217, end: 20121224
  4. PEGINTRON [Suspect]
     Dosage: 1.37 ?G/KG, QW
     Route: 058
     Dates: start: 20121225
  5. REBETOL [Suspect]
     Indication: CHRONIC HEPATITIS C
     Dosage: 600 MG, QD
     Route: 048
     Dates: start: 20121105
  6. URSO [Concomitant]
     Dosage: 600 MG, QD
     Route: 048
  7. GASTER D [Concomitant]
     Dosage: 40 MG, QD
     Route: 048
  8. FLOMAX [Concomitant]
     Dosage: 300 MG, QD
     Route: 048
     Dates: start: 20121106, end: 20121109
  9. ZYLORIC [Concomitant]
     Dosage: 300 MG, QD
     Route: 048
     Dates: start: 20121109, end: 20130104

REACTIONS (9)
  - Drug eruption [Recovered/Resolved]
  - Depressive symptom [Recovered/Resolved]
  - Pyrexia [Recovered/Resolved]
  - Insomnia [Not Recovered/Not Resolved]
  - Malaise [Recovered/Resolved]
  - Asthenia [Recovered/Resolved]
  - Rash [Not Recovered/Not Resolved]
  - Erythema [Recovered/Resolved]
  - Hyperuricaemia [Recovered/Resolved]
